FAERS Safety Report 7781955-4 (Version None)
Quarter: 2011Q3

REPORT INFORMATION
  Report Type: 
  Country: None (occurrence: None)
  Receive Date: 20110927
  Receipt Date: 20110914
  Transmission Date: 20111222
  Serious: Yes (Other)
  Sender: FDA-Public Use
  Company Number: PHHY2011FR82738

PATIENT
  Sex: Female

DRUGS (9)
  1. VALSARTAN [Suspect]
     Dosage: 1 DF, DAILY
     Route: 048
     Dates: end: 20110825
  2. ZOLPIDEM [Concomitant]
  3. LEVOTHYROXINE SODIUM [Concomitant]
  4. RABEPRAZOLE SODIUM [Concomitant]
  5. STABLON [Concomitant]
  6. LASIX [Concomitant]
  7. CORDARONE [Concomitant]
  8. DUOPLAVIN [Concomitant]
  9. DICETEL [Concomitant]

REACTIONS (3)
  - ABDOMINAL PAIN [None]
  - PHOTOSENSITIVITY REACTION [None]
  - ERYTHEMA [None]
